FAERS Safety Report 17520353 (Version 1)
Quarter: 2020Q1

REPORT INFORMATION
  Report Type: Other
  Country: US (occurrence: US)
  Receive Date: 20200309
  Receipt Date: 20200309
  Transmission Date: 20200409
  Serious: Yes (Other)
  Sender: FDA-Public Use
  Company Number: US-TARGET-2081435

PATIENT
  Age: 9 Year
  Sex: Male
  Weight: 45.46 kg

DRUGS (1)
  1. MULTI SYMPTOM COLD AND MULTI SYMPTOM NIGHTTIME COLD CHILDRENS [Suspect]
     Active Substance: ACETAMINOPHEN\DEXTROMETHORPHAN HYDROBROMIDE\DIPHENHYDRAMINE HYDROCHLORIDE\GUAIFENESIN\PHENYLEPHRINE HYDROCHLORIDE
     Indication: NASOPHARYNGITIS
     Route: 048
     Dates: start: 20200131, end: 20200131

REACTIONS (1)
  - Foreign body [None]
